FAERS Safety Report 23603317 (Version 1)
Quarter: 2024Q1

REPORT INFORMATION
  Report Type: Spontaneous
  Country: US (occurrence: US)
  Receive Date: 20240307
  Receipt Date: 20240307
  Transmission Date: 20240409
  Serious: No
  Sender: FDA-Public Use
  Company Number: US-PADAGIS-2024PAD00298

PATIENT

DRUGS (1)
  1. BRIMONIDINE TARTRATE [Suspect]
     Active Substance: BRIMONIDINE TARTRATE
     Indication: Rosacea
     Dosage: UNK
     Route: 065
     Dates: start: 20240103, end: 202401

REACTIONS (3)
  - Application site erythema [None]
  - Rosacea [Unknown]
  - Drug ineffective [Unknown]
